FAERS Safety Report 7617853-6 (Version None)
Quarter: 2011Q3

REPORT INFORMATION
  Report Type: 
  Country: None (occurrence: None)
  Receive Date: 20110718
  Receipt Date: 20110708
  Transmission Date: 20111222
  Serious: Yes (Death, Disabling)
  Sender: FDA-Public Use
  Company Number: US-BRACCO-005113

PATIENT
  Sex: Female
  Weight: 149 kg

DRUGS (21)
  1. FERROUS SULFATE TAB [Concomitant]
  2. PROHANCE [Suspect]
     Indication: ANGIOGRAM
     Dates: start: 20070511, end: 20070511
  3. RENAGEL [Concomitant]
  4. ASPIRIN [Concomitant]
  5. EPOGEN [Concomitant]
  6. PROHANCE [Suspect]
     Indication: NUCLEAR MAGNETIC RESONANCE IMAGING
     Dates: start: 20071109, end: 20071109
  7. FOSRENOL [Concomitant]
  8. ALTACE [Concomitant]
  9. DIOVAN [Concomitant]
  10. NORVASC [Concomitant]
  11. ROCALTROL [Concomitant]
  12. MULTIHANCE [Suspect]
     Indication: NUCLEAR MAGNETIC RESONANCE IMAGING
     Route: 042
     Dates: start: 20080304, end: 20080304
  13. COREG [Concomitant]
  14. PHOSLO [Concomitant]
  15. PROCRIT [Concomitant]
  16. AMITRIPTYLINE HCL [Concomitant]
  17. SENSIPAR [Concomitant]
  18. HUMALOG [Concomitant]
  19. CLONIDINE [Concomitant]
  20. LANTUS [Concomitant]
  21. MAGNEVIST [Suspect]
     Indication: NUCLEAR MAGNETIC RESONANCE IMAGING ABDOMINAL
     Dates: start: 20030913, end: 20030913

REACTIONS (1)
  - NEPHROGENIC SYSTEMIC FIBROSIS [None]
